FAERS Safety Report 8607156 (Version 3)
Quarter: 2013Q4

REPORT INFORMATION
  Report Type: Spontaneous
  Country: US (occurrence: US)
  Receive Date: 20120611
  Receipt Date: 20131129
  Transmission Date: 20140711
  Serious: Yes (Hospitalization)
  Sender: FDA-Public Use
  Company Number: US-ASTRAZENECA-2012SE34886

PATIENT
  Age: 60 Year
  Sex: Female
  Weight: 96.2 kg

DRUGS (9)
  1. NEXIUM [Suspect]
     Indication: GASTROOESOPHAGEAL REFLUX DISEASE
     Route: 048
  2. NEXIUM [Suspect]
     Indication: GASTROOESOPHAGEAL REFLUX DISEASE
     Route: 048
  3. SINGULAR [Concomitant]
  4. ALLEGRA [Concomitant]
  5. HYDROCHLOROTHIAZIDE [Concomitant]
  6. LISINOPRIL [Concomitant]
  7. PRAVASTATIN [Concomitant]
     Dosage: 1 TAB DAILY
  8. CANDIZER [Concomitant]
  9. CALCIUM [Concomitant]

REACTIONS (9)
  - Cardiac disorder [Unknown]
  - Osteoporosis [Unknown]
  - Asthma [Unknown]
  - Bone disorder [Unknown]
  - Multiple fractures [Unknown]
  - Osteoarthritis [Unknown]
  - Rib fracture [Unknown]
  - Contusion [Unknown]
  - Osteopenia [Unknown]
